FAERS Safety Report 24335647 (Version 1)
Quarter: 2024Q3

REPORT INFORMATION
  Report Type: Spontaneous
  Country: US (occurrence: US)
  Receive Date: 20240919
  Receipt Date: 20240919
  Transmission Date: 20241016
  Serious: No
  Sender: Avyxa Holdings
  Company Number: US-AVYXA HOLDINGS, LLC-2024AVY000003

PATIENT

DRUGS (1)
  1. DOCIVYX [Suspect]
     Active Substance: DOCETAXEL
     Indication: Product used for unknown indication
     Dosage: 124 MG INTRAVENOUSLY EVERY 21 DAYS.
     Route: 042

REACTIONS (3)
  - Laziness [Unknown]
  - Asthenia [Unknown]
  - Fatigue [Unknown]
